FAERS Safety Report 5225278-6 (Version None)
Quarter: 2007Q1

REPORT INFORMATION
  Report Type: 
  Country: None (occurrence: None)
  Receive Date: 20070131
  Receipt Date: 20070118
  Transmission Date: 20070707
  Serious: Yes (Hospitalization, Other)
  Sender: FDA-Public Use
  Company Number: PHBS2006JP19903

PATIENT
  Age: 67 Year
  Sex: Female

DRUGS (3)
  1. ONCOVIN [Concomitant]
     Dosage: UNK, UNK
     Route: 042
     Dates: start: 20061215
  2. GLEEVEC [Suspect]
     Indication: CHRONIC MYELOID LEUKAEMIA
     Dosage: 400 MG/DAY
     Route: 048
     Dates: start: 20061130
  3. GLEEVEC [Suspect]
     Dosage: 600 MG/DAY
     Route: 048

REACTIONS (3)
  - BLOOD FIBRINOGEN DECREASED [None]
  - HYPONATRAEMIA [None]
  - PANCYTOPENIA [None]
